FAERS Safety Report 9055618 (Version 2)
Quarter: 2013Q2

REPORT INFORMATION
  Report Type: Spontaneous
  Country: US (occurrence: US)
  Receive Date: 20130206
  Receipt Date: 20130422
  Transmission Date: 20140414
  Serious: Yes (Other)
  Sender: FDA-Public Use
  Company Number: US-009507513-1302USA000053

PATIENT
  Age: 19 Year
  Sex: Female

DRUGS (1)
  1. NEXPLANON [Suspect]
     Indication: CONTRACEPTION
     Dosage: 68 MG PER ONE IMPLANT FOR 3 YEARS
     Route: 059
     Dates: start: 2012, end: 2012

REACTIONS (2)
  - Dehydration [Recovered/Resolved]
  - Nausea [Recovered/Resolved]
